FAERS Safety Report 9261509 (Version 1)
Quarter: 2013Q2

REPORT INFORMATION
  Report Type: Spontaneous
  Country: CA (occurrence: CA)
  Receive Date: 20130429
  Receipt Date: 20130429
  Transmission Date: 20140414
  Serious: Yes (Other)
  Sender: FDA-Public Use
  Company Number: CA-ASTRAZENECA-2013SE26805

PATIENT
  Age: 72 Year
  Sex: Female

DRUGS (3)
  1. SYMBICORT TURBUHALER [Suspect]
     Indication: ASTHMA
     Dosage: 2 INHALATIONS BID
     Route: 055
  2. TEV-METOPROLOL [Concomitant]
     Indication: CARDIAC FAILURE CONGESTIVE
     Route: 048
  3. SPIRIVA [Concomitant]

REACTIONS (4)
  - Anaemia [Unknown]
  - Alopecia [Unknown]
  - Dyspnoea [Unknown]
  - Rash [Unknown]
